FAERS Safety Report 16430195 (Version 1)
Quarter: 2019Q2

REPORT INFORMATION
  Report Type: Spontaneous
  Country: JP (occurrence: JP)
  Receive Date: 20190614
  Receipt Date: 20190614
  Transmission Date: 20190711
  Serious: Yes (Other)
  Sender: FDA-Public Use
  Company Number: JP-ELI_LILLY_AND_COMPANY-JP201906002523

PATIENT
  Age: 85 Year
  Sex: Female

DRUGS (4)
  1. METHOTREXATE. [Concomitant]
     Active Substance: METHOTREXATE
  2. TRULICITY [Suspect]
     Active Substance: DULAGLUTIDE
     Indication: TYPE 2 DIABETES MELLITUS
     Dosage: 0.75 MG, WEEKLY (1/W)
     Route: 058
  3. CALONAL [Concomitant]
     Active Substance: ACETAMINOPHEN
  4. VOGLIBOSE [Concomitant]
     Active Substance: VOGLIBOSE

REACTIONS (2)
  - Gastric cancer [Not Recovered/Not Resolved]
  - Decreased appetite [Not Recovered/Not Resolved]
